FAERS Safety Report 8885455 (Version 4)
Quarter: 2013Q1

REPORT INFORMATION
  Report Type: Spontaneous
  Country: US (occurrence: US)
  Receive Date: 20121101
  Receipt Date: 20130110
  Transmission Date: 20140127
  Serious: Yes (Disabling, Other)
  Sender: FDA-Public Use
  Company Number: US-PFIZER INC-2012269950

PATIENT
  Age: 58 Year
  Sex: Female

DRUGS (10)
  1. GABAPENTIN [Suspect]
     Dosage: UNK
  2. LIPITOR [Suspect]
     Indication: BLOOD CHOLESTEROL INCREASED
     Dosage: 80 MG, 1X/DAY
  3. LIPITOR [Suspect]
     Indication: BLOOD TRIGLYCERIDES INCREASED
  4. TRAMADOL HCL [Suspect]
     Dosage: UNK
  5. TRICOR [Suspect]
     Indication: BLOOD CHOLESTEROL INCREASED
     Dosage: 145 MG (1 TABLET)
  6. TRICOR [Suspect]
     Indication: BLOOD TRIGLYCERIDES INCREASED
  7. HYDROCHLOROTHIAZIDE [Concomitant]
     Dosage: 25 MG, UNK
  8. AMLODIPINE BESILATE [Concomitant]
     Dosage: 5 MG, UNK
  9. LISINOPRIL [Concomitant]
     Dosage: 10 MG, UNK
  10. CRESTOR [Concomitant]

REACTIONS (15)
  - Cerebrovascular accident [Unknown]
  - Carotid artery disease [Unknown]
  - Blood pressure increased [Unknown]
  - Blood cholesterol increased [Unknown]
  - Blood triglycerides increased [Unknown]
  - Musculoskeletal pain [Unknown]
  - Facial pain [Unknown]
  - Neck pain [Unknown]
  - Ear pain [Unknown]
  - Hypoaesthesia [Unknown]
  - Dizziness [Unknown]
  - Somnolence [Unknown]
  - Impaired work ability [Unknown]
  - Stress [Unknown]
  - Headache [Unknown]
